FAERS Safety Report 10385514 (Version 1)
Quarter: 2014Q3

REPORT INFORMATION
  Report Type: Spontaneous
  Country: FR (occurrence: FR)
  Receive Date: 20140814
  Receipt Date: 20140814
  Transmission Date: 20150326
  Serious: Yes (Other)
  Sender: FDA-Public Use
  Company Number: FR-TEVA-499943ISR

PATIENT
  Age: 60 Year
  Sex: Female

DRUGS (2)
  1. ESTREVA [Concomitant]
     Active Substance: ESTRADIOL
  2. PROGESTERONE TEVA [Suspect]
     Active Substance: PROGESTERONE
     Route: 048

REACTIONS (1)
  - Drug eruption [Recovered/Resolved]

NARRATIVE: CASE EVENT DATE: 200808
